FAERS Safety Report 6214387-0 (Version None)
Quarter: 2009Q2

REPORT INFORMATION
  Report Type: 
  Country: None (occurrence: None)
  Receive Date: 20090602
  Receipt Date: 20090521
  Transmission Date: 20091009
  Serious: Yes (Hospitalization)
  Sender: FDA-Public Use
  Company Number: GXKR2009JP06098

PATIENT
  Age: 43 Year
  Sex: Female

DRUGS (2)
  1. METHYLPREDNISOLONE 4MG TAB [Suspect]
     Indication: MULTIPLE SCLEROSIS
     Dosage: 1000 MG
     Dates: start: 20071001
  2. INTEFERON BETA (INTERFERON BETA) [Suspect]
     Indication: MULTIPLE SCLEROSIS
     Dates: start: 20060711, end: 20060726

REACTIONS (5)
  - AUTOIMMUNE HEPATITIS [None]
  - BLOOD PRESSURE SYSTOLIC INCREASED [None]
  - EPSTEIN-BARR VIRUS INFECTION [None]
  - HEART RATE INCREASED [None]
  - INJECTION SITE URTICARIA [None]
